FAERS Safety Report 8317941-5 (Version None)
Quarter: 2012Q2

REPORT INFORMATION
  Report Type: 
  Country: None (occurrence: None)
  Receive Date: 20120427
  Receipt Date: 20120424
  Transmission Date: 20120825
  Serious: Yes (Death, Hospitalization, Other)
  Sender: FDA-Public Use
  Company Number: US-GILEAD-2012-0054116

PATIENT
  Sex: Male

DRUGS (12)
  1. LETAIRIS [Suspect]
     Dosage: 5 MG, UNK
     Route: 048
     Dates: start: 20090401, end: 20090601
  2. FLUOXETINE [Concomitant]
  3. HYDROCODONE BITARTRATE AND ACETAMINOPHEN [Concomitant]
  4. FUROSEMIDE [Concomitant]
  5. FLOLAN [Concomitant]
  6. REVATIO [Concomitant]
  7. POTASSIUM CHLORIDE [Concomitant]
  8. CARVEDILOL [Concomitant]
  9. DIGOXIN [Concomitant]
  10. SIMVASTATIN [Concomitant]
  11. LETAIRIS [Suspect]
     Indication: PULMONARY HYPERTENSION
     Dosage: 10 UNK, UNK
     Route: 048
     Dates: start: 20090601
  12. OMEPRAZOLE [Concomitant]

REACTIONS (8)
  - CYANOSIS [None]
  - LIVER FUNCTION TEST ABNORMAL [None]
  - CHEST PAIN [None]
  - CARDIAC ARREST [None]
  - DEATH [None]
  - HYPERKALAEMIA [None]
  - RENAL FAILURE [None]
  - LACTIC ACIDOSIS [None]
